FAERS Safety Report 18363692 (Version 1)
Quarter: 2020Q4

REPORT INFORMATION
  Report Type: Spontaneous
  Country: GB (occurrence: GB)
  Receive Date: 20201009
  Receipt Date: 20201009
  Transmission Date: 20210114
  Serious: Yes (Congenital Anomaly, Other)
  Sender: FDA-Public Use
  Company Number: GB-LAURUS LABS LIMITED-202000194

PATIENT

DRUGS (2)
  1. TENOFOVIR AND EMTRICITABINE [Suspect]
     Active Substance: EMTRICITABINE\TENOFOVIR
     Indication: PRODUCT USED FOR UNKNOWN INDICATION
     Dosage: PER DAY TAKEN BY MOTHER ORALLY
     Route: 064
  2. NEVIRAPINE. [Suspect]
     Active Substance: NEVIRAPINE
     Indication: PRODUCT USED FOR UNKNOWN INDICATION
     Dosage: TAB/CAPS TAKEN BY MOTHER ORALLY
     Route: 064

REACTIONS (3)
  - Developmental delay [Unknown]
  - Foetal exposure during pregnancy [Unknown]
  - Speech disorder developmental [Unknown]
